FAERS Safety Report 6256623-0 (Version None)
Quarter: 2009Q3

REPORT INFORMATION
  Report Type: 
  Country: None (occurrence: None)
  Receive Date: 20090706
  Receipt Date: 20090629
  Transmission Date: 20100115
  Serious: Yes (Other)
  Sender: FDA-Public Use
  Company Number: SE-BAYER-200924302GPV

PATIENT
  Age: 64 Year
  Sex: Male

DRUGS (1)
  1. BETAFERON [Suspect]
     Indication: MULTIPLE SCLEROSIS
     Route: 058
     Dates: start: 20090201

REACTIONS (3)
  - ABDOMINAL PAIN [None]
  - STRESS [None]
  - SYNCOPE [None]
